FAERS Safety Report 8349058-8 (Version None)
Quarter: 2012Q2

REPORT INFORMATION
  Report Type: 
  Country: None (occurrence: None)
  Receive Date: 20120510
  Receipt Date: 20120503
  Transmission Date: 20120825
  Serious: Yes (Other)
  Sender: FDA-Public Use
  Company Number: SE-JNJFOC-20120400385

PATIENT
  Sex: Female

DRUGS (2)
  1. NICORETTE (MINT) [Suspect]
     Indication: SMOKING CESSATION THERAPY
     Dosage: 8 TO 10 TABLETS
     Route: 048
     Dates: start: 20111227, end: 20120318
  2. VITAMINS NOS [Concomitant]
     Indication: PRODUCT USED FOR UNKNOWN INDICATION
     Route: 065

REACTIONS (2)
  - TOOTH FRACTURE [None]
  - TOOTH EROSION [None]
